FAERS Safety Report 16634294 (Version 1)
Quarter: 2019Q3

REPORT INFORMATION
  Report Type: Spontaneous
  Country: NL (occurrence: NL)
  Receive Date: 20190726
  Receipt Date: 20190726
  Transmission Date: 20191004
  Serious: Yes (Other)
  Sender: FDA-Public Use
  Company Number: NL-OCTA-LIT05319NL

PATIENT
  Age: 75 Year
  Sex: Male

DRUGS (1)
  1. HUMAN NORMAL IMMUNOGLOBULIN (IV) [Suspect]
     Active Substance: HUMAN IMMUNOGLOBULIN G
     Indication: KIDNEY TRANSPLANT REJECTION
     Route: 042

REACTIONS (2)
  - Hepatitis B antibody positive [Unknown]
  - Seroconversion test positive [Unknown]
